FAERS Safety Report 7904162-0 (Version None)
Quarter: 2011Q4

REPORT INFORMATION
  Report Type: 
  Country: None (occurrence: None)
  Receive Date: 20111109
  Receipt Date: 20111103
  Transmission Date: 20120403
  Serious: Yes (Other)
  Sender: FDA-Public Use
  Company Number: US-PFIZER INC-2011270123

PATIENT
  Sex: Female
  Weight: 72.562 kg

DRUGS (3)
  1. HYDROCORTISONE [Concomitant]
     Indication: VAGINAL CANCER
     Dosage: UNK
     Route: 067
     Dates: end: 20111001
  2. PREMARIN [Suspect]
     Indication: ATROPHIC VULVOVAGINITIS
     Dosage: UNK, DAILY
     Route: 067
     Dates: start: 20111001, end: 20111001
  3. COZAAR [Concomitant]
     Indication: HYPERTENSION
     Dosage: 50 MG, DAILY

REACTIONS (4)
  - HAEMORRHAGE [None]
  - THROMBOSIS [None]
  - LOCAL SWELLING [None]
  - SKIN DISCOLOURATION [None]
